FAERS Safety Report 7884486-6 (Version None)
Quarter: 2011Q4

REPORT INFORMATION
  Report Type: 
  Country: None (occurrence: None)
  Receive Date: 20111102
  Receipt Date: 20111026
  Transmission Date: 20120403
  Serious: Yes (Hospitalization, Other)
  Sender: FDA-Public Use
  Company Number: DE-GENZYME-CAMP-1001893

PATIENT
  Sex: Male
  Weight: 80 kg

DRUGS (12)
  1. DEXAMETHASONE [Suspect]
     Indication: CHRONIC LYMPHOCYTIC LEUKAEMIA
     Dosage: 40 MG, QDX4
     Route: 048
     Dates: start: 20110902, end: 20110905
  2. CANDESARTAN CILEXETIL [Concomitant]
     Indication: PRODUCT USED FOR UNKNOWN INDICATION
     Dosage: 16 MG, UNK (1-0-1-0)
     Route: 065
  3. SIMVASTATIN [Concomitant]
     Indication: PRODUCT USED FOR UNKNOWN INDICATION
     Dosage: 20 MG (0-0-0-1)
     Route: 065
  4. NEBIVOLOL HCL [Concomitant]
     Indication: PRODUCT USED FOR UNKNOWN INDICATION
     Dosage: 2.5 MG (0-1-0-0)
     Route: 065
  5. MARCUMAR [Concomitant]
     Indication: PRODUCT USED FOR UNKNOWN INDICATION
     Dosage: UNK
  6. PANTOPRAZOLE [Concomitant]
     Indication: PRODUCT USED FOR UNKNOWN INDICATION
     Dosage: 40 MG (1-0-0-0)
     Route: 065
  7. NOVALGIN [Concomitant]
     Indication: PRODUCT USED FOR UNKNOWN INDICATION
     Dosage: 20 GTT 4X DAILY PRN
     Route: 065
  8. PENTACARINAT [Concomitant]
     Indication: PRODUCT USED FOR UNKNOWN INDICATION
     Dosage: 400 MG (1-1-1-0) 4X WEEKLY
     Route: 055
     Dates: end: 20110911
  9. CAMPATH [Suspect]
     Indication: CHRONIC LYMPHOCYTIC LEUKAEMIA
     Dosage: 30 MG, QD ON DAYS 1, 3 AND 5
     Route: 058
     Dates: start: 20110721, end: 20110812
  10. CAMPATH [Suspect]
     Dosage: 30 MG, QD ON DAYS 1, 3 AND 5
     Route: 058
     Dates: start: 20110829, end: 20110912
  11. PEGFILGRASTIM [Suspect]
     Indication: NEUTROPENIA
     Dosage: 6 MG, QD
     Route: 058
     Dates: start: 20110902
  12. TAMSULOSIN HCL [Concomitant]
     Indication: PRODUCT USED FOR UNKNOWN INDICATION
     Dosage: 0.4 MG (1-0-0-0)
     Route: 065

REACTIONS (6)
  - CHILLS [None]
  - C-REACTIVE PROTEIN INCREASED [None]
  - PNEUMONIA BACTERIAL [None]
  - FEBRILE NEUTROPENIA [None]
  - INFECTION [None]
  - TROPONIN INCREASED [None]
